FAERS Safety Report 5018559-2 (Version None)
Quarter: 2006Q2

REPORT INFORMATION
  Report Type: 
  Country: None (occurrence: None)
  Receive Date: 20060414
  Receipt Date: 20051220
  Transmission Date: 20061013
  Serious: No
  Sender: FDA-Public Use
  Company Number: 2005SP004476

PATIENT
  Age: 66 Year
  Sex: Male
  Weight: 122.4712 kg

DRUGS (20)
  1. LUNESTA [Suspect]
     Indication: INSOMNIA
     Dosage: SEE IMAGE
     Route: 048
     Dates: start: 20051120, end: 20051120
  2. LUNESTA [Suspect]
     Indication: INSOMNIA
     Dosage: SEE IMAGE
     Route: 048
     Dates: start: 20051121, end: 20051121
  3. VICODIN [Concomitant]
  4. AMLODIPINE BESYLATE [Concomitant]
  5. PIOGLITAZINE HYDROCHLORIDE [Concomitant]
  6. INSULIN [Concomitant]
  7. BUMEX [Concomitant]
  8. CALCIDOL [Concomitant]
  9. CLONIDINE [Concomitant]
  10. HYDRALAZINE HCL [Concomitant]
  11. ISOSORBIDE [Concomitant]
  12. CLONAZEPAM [Concomitant]
  13. PAMELOR [Concomitant]
  14. PLAVIX [Concomitant]
  15. PANTOPRAZOLE [Concomitant]
  16. RITALIN [Concomitant]
  17. TRICOR [Concomitant]
  18. SIMVASTATIN [Concomitant]
  19. WARFARIN SODIUM [Concomitant]
  20. AMBIEN [Concomitant]

REACTIONS (1)
  - DYSGEUSIA [None]
